FAERS Safety Report 7552457-5 (Version None)
Quarter: 2011Q2

REPORT INFORMATION
  Report Type: 
  Country: None (occurrence: None)
  Receive Date: 20110616
  Receipt Date: 20110614
  Transmission Date: 20111010
  Serious: Yes (Other)
  Sender: FDA-Public Use
  Company Number: US-PFIZER INC-2011111083

PATIENT
  Sex: Female
  Weight: 76.19 kg

DRUGS (8)
  1. LYRICA [Suspect]
     Indication: FIBROMYALGIA
     Dosage: 75 MG, 2X/DAY
     Route: 048
     Dates: start: 20110301, end: 20110525
  2. CLOZAPINE [Concomitant]
     Indication: ANXIETY
     Dosage: 0.5 MG, UNK
  3. LYRICA [Suspect]
     Indication: MYALGIA
  4. PROPRANOLOL [Concomitant]
     Dosage: UNK
  5. EFFEXOR [Concomitant]
     Indication: DEPRESSION
     Dosage: 150 MG, UNK
  6. EFFEXOR [Concomitant]
     Indication: ANXIETY
  7. LYRICA [Suspect]
     Indication: ARTHRALGIA
  8. THYROID TAB [Concomitant]
     Indication: HYPOTHYROIDISM
     Dosage: 10 MG, UNK

REACTIONS (4)
  - PHARYNGEAL OEDEMA [None]
  - TONGUE OEDEMA [None]
  - OEDEMA PERIPHERAL [None]
  - LIP SWELLING [None]
